FAERS Safety Report 18938059 (Version 1)
Quarter: 2021Q1

REPORT INFORMATION
  Report Type: Other
  Country: MG (occurrence: MG)
  Receive Date: 20210224
  Receipt Date: 20210224
  Transmission Date: 20210420
  Serious: Yes (Disabling, Other)
  Sender: FDA-Public Use
  Company Number: MG-DEXPHARM-20210166

PATIENT
  Age: 7 Year
  Sex: Male

DRUGS (4)
  1. BENZATHINE PENICILLIN [Suspect]
     Active Substance: PENICILLIN G BENZATHINE
  2. METHYLPREDNISOLONE. [Concomitant]
     Active Substance: METHYLPREDNISOLONE
     Dosage: METHYLPREDNISOLONE (2 MG/KG/8 H)
  3. AMOXICILLIN+#8211;CLAVULANATE [Concomitant]
     Dosage: AMOXICILLIN+#8211;CLAVULANATE THERAPY (25 MG/KG/8 H)
  4. DICLOFENAC [Suspect]
     Active Substance: DICLOFENAC

REACTIONS (1)
  - Embolia cutis medicamentosa [Not Recovered/Not Resolved]
